FAERS Safety Report 10665962 (Version 1)
Quarter: 2014Q4

REPORT INFORMATION
  Report Type: Spontaneous
  Country: US (occurrence: US)
  Receive Date: 20141219
  Receipt Date: 20141219
  Transmission Date: 20150529
  Serious: Yes (Other)
  Sender: FDA-Public Use
  Company Number: ALCN2014US007063

PATIENT
  Age: 56 Year
  Sex: Female

DRUGS (2)
  1. TOBRAMYCIN AND DEXAMETHASONE [Suspect]
     Active Substance: DEXAMETHASONE\TOBRAMYCIN
     Indication: EYE IRRITATION
  2. TOBRAMYCIN AND DEXAMETHASONE [Suspect]
     Active Substance: DEXAMETHASONE\TOBRAMYCIN
     Indication: LACRIMATION INCREASED
     Dosage: 1 DF, UNK
     Route: 047

REACTIONS (2)
  - Open angle glaucoma [Recovering/Resolving]
  - Intraocular pressure increased [Recovering/Resolving]
